FAERS Safety Report 7547304-1 (Version None)
Quarter: 2011Q2

REPORT INFORMATION
  Report Type: 
  Country: None (occurrence: None)
  Receive Date: 20110614
  Receipt Date: 20110531
  Transmission Date: 20111010
  Serious: Yes (Other)
  Sender: FDA-Public Use
  Company Number: GB-UCBSA-034505

PATIENT
  Age: 16 Year
  Sex: Female

DRUGS (3)
  1. VIMPAT [Suspect]
  2. VIMPAT [Suspect]
  3. VIMPAT [Suspect]

REACTIONS (2)
  - POSTOPERATIVE WOUND INFECTION [None]
  - VOMITING [None]
